FAERS Safety Report 7222212-4 (Version None)
Quarter: 2011Q1

REPORT INFORMATION
  Report Type: 
  Country: None (occurrence: None)
  Receive Date: 20110103
  Receipt Date: 20101221
  Transmission Date: 20110831
  Serious: Yes (Hospitalization)
  Sender: FDA-Public Use
  Company Number: 2010SP066063

PATIENT
  Age: 32 Year
  Sex: Female
  Weight: 50 kg

DRUGS (6)
  1. NORGESTREL AND ETHINYL ESTRADIOL [Concomitant]
  2. FOLLISTIM [Concomitant]
  3. BUSERECUR [Concomitant]
  4. PROGE DEPOT [Concomitant]
  5. GANIREST (GANIRELIX /01453701/) [Suspect]
     Indication: PREVENTION OF PREMATURE OVULATION
     Dosage: 0.25 MG; SC
     Route: 058
     Dates: start: 20100920, end: 20100922
  6. DUPHASTON [Concomitant]

REACTIONS (2)
  - ECTOPIC PREGNANCY [None]
  - DRUG EXPOSURE DURING PREGNANCY [None]
